FAERS Safety Report 22181871 (Version 2)
Quarter: 2023Q2

REPORT INFORMATION
  Report Type: Spontaneous
  Country: IT (occurrence: IT)
  Receive Date: 20230406
  Receipt Date: 20230623
  Transmission Date: 20230721
  Serious: Yes (Hospitalization)
  Sender: FDA-Public Use
  Company Number: IT-ROCHE-3317568

PATIENT
  Age: 56 Year
  Sex: Male

DRUGS (6)
  1. DOXORUBICIN HYDROCHLORIDE [Suspect]
     Active Substance: DOXORUBICIN HYDROCHLORIDE
     Indication: Diffuse large B-cell lymphoma
     Dosage: 50 MG/M2, 1X/DAY, DAY 1 OUT OF  21 DAY CYCLE
     Route: 042
     Dates: start: 20170216
  2. VINCRISTINE SULFATE [Suspect]
     Active Substance: VINCRISTINE SULFATE
     Indication: Diffuse large B-cell lymphoma
     Dosage: 1.4 MG/M2, 1X/DAY, DAY 1 OUT OF  21 DAY CYCLE
     Route: 042
     Dates: start: 20170216
  3. PREDNISONE [Suspect]
     Active Substance: PREDNISONE
     Indication: Diffuse large B-cell lymphoma
     Dosage: 100 MG, 1X/DAY, 1-5 DAYS OUT OF 21 DAY CYCLE
     Route: 048
     Dates: start: 20170216, end: 20170220
  4. LENALIDOMIDE [Suspect]
     Active Substance: LENALIDOMIDE
     Indication: Diffuse large B-cell lymphoma
     Dosage: 20 MG, 1X/DAY (1-14 OF EVERY 21-DAY CYCLE   )
     Route: 042
     Dates: start: 20170216
  5. CYCLOPHOSPHAMIDE [Suspect]
     Active Substance: CYCLOPHOSPHAMIDE
     Indication: Diffuse large B-cell lymphoma
     Dosage: 750 MG/M2, 1X/DAY, DAY 1 OUT OF  21 DAY CYCLE
     Route: 042
     Dates: start: 20170216
  6. RITUXIMAB [Suspect]
     Active Substance: RITUXIMAB
     Indication: Diffuse large B-cell lymphoma
     Dosage: 375 MG/M2, 1X/DAY, DAY 1 OUT OF 21 DAY CYCLE
     Route: 048
     Dates: start: 20170216

REACTIONS (2)
  - General physical health deterioration [Recovered/Resolved]
  - Haematotoxicity [Recovered/Resolved]

NARRATIVE: CASE EVENT DATE: 20170223
